FAERS Safety Report 7460429-4 (Version None)
Quarter: 2011Q2

REPORT INFORMATION
  Report Type: 
  Country: None (occurrence: None)
  Receive Date: 20110505
  Receipt Date: 20110427
  Transmission Date: 20111010
  Serious: Yes (Death)
  Sender: FDA-Public Use
  Company Number: B0716117A

PATIENT
  Sex: Male
  Weight: 71 kg

DRUGS (23)
  1. TAKEPRON [Concomitant]
     Dosage: 1IUAX PER DAY
     Route: 048
     Dates: start: 20090409, end: 20090430
  2. HYDROCORTONE [Concomitant]
     Dosage: 100MG PER DAY
     Route: 042
     Dates: start: 20090410, end: 20090510
  3. LENDORMIN [Concomitant]
     Dosage: 1.75MG PER DAY
     Route: 048
     Dates: start: 20090409, end: 20090409
  4. POLARAMINE [Concomitant]
     Dosage: 5MG PER DAY
     Dates: start: 20090410, end: 20090410
  5. AMIKACIN SULFATE [Concomitant]
     Dosage: 200MG PER DAY
     Dates: start: 20090411, end: 20090413
  6. MEYLON [Concomitant]
     Dosage: 6IUAX PER DAY
     Route: 042
     Dates: start: 20090409, end: 20090414
  7. CRAVIT [Concomitant]
     Dosage: 300MG PER DAY
     Route: 048
     Dates: start: 20090409, end: 20090423
  8. BROCIN CODEINE [Concomitant]
     Dosage: 24ML PER DAY
     Route: 048
     Dates: start: 20090410, end: 20090410
  9. GRAN [Concomitant]
     Dates: start: 20090422, end: 20090511
  10. TACROLIMUS HYDRATE [Concomitant]
     Indication: IMMUNOSUPPRESSION
     Dosage: 1MG PER DAY
     Route: 065
     Dates: start: 20090414, end: 20090511
  11. METHOTREXATE [Concomitant]
     Indication: IMMUNOSUPPRESSION
     Dosage: 15MG PER DAY
     Route: 065
     Dates: start: 20090416, end: 20090421
  12. FLUDARA [Suspect]
     Indication: ALLOGENIC BONE MARROW TRANSPLANTATION THERAPY
     Dosage: 50MG PER DAY
     Route: 042
     Dates: start: 20090409, end: 20090413
  13. ALOSITOL [Concomitant]
     Dosage: 300MG PER DAY
     Route: 048
     Dates: end: 20090422
  14. URSO 250 [Concomitant]
     Dosage: 600MG PER DAY
     Route: 048
     Dates: start: 20090409, end: 20090430
  15. ZOVIRAX [Concomitant]
     Dosage: 1000MG PER DAY
     Route: 048
     Dates: start: 20090409, end: 20090430
  16. FLUCONAZOLE [Concomitant]
     Dosage: 100MG PER DAY
     Route: 048
     Dates: end: 20090430
  17. FUROSEMIDE [Concomitant]
     Dosage: 20MG PER DAY
     Dates: start: 20090410, end: 20090508
  18. ONDANSETRON [Concomitant]
     Dosage: 4MG PER DAY
     Dates: start: 20090409, end: 20090413
  19. ZADITEN [Concomitant]
     Dosage: 1MG PER DAY
     Route: 048
     Dates: end: 20090421
  20. SOLDEM [Concomitant]
     Dosage: 3000ML PER DAY
     Route: 042
     Dates: start: 20090409, end: 20090511
  21. ALKERAN [Suspect]
     Indication: ALLOGENIC BONE MARROW TRANSPLANTATION THERAPY
     Dosage: 160MG PER DAY
     Route: 042
     Dates: start: 20090409, end: 20090410
  22. ACDEAM [Concomitant]
     Dosage: 270MG PER DAY
     Route: 048
     Dates: end: 20090421
  23. ALLEGRA [Concomitant]
     Dosage: 60MG PER DAY
     Route: 048
     Dates: end: 20090421

REACTIONS (1)
  - SYSTEMIC CANDIDA [None]
